FAERS Safety Report 14952257 (Version 9)
Quarter: 2024Q4

REPORT INFORMATION
  Report Type: Spontaneous
  Country: US (occurrence: US)
  Receive Date: 20180530
  Receipt Date: 20241202
  Transmission Date: 20250114
  Serious: No
  Sender: PFIZER
  Company Number: US-PFIZER INC-2018213559

PATIENT
  Age: 66 Year
  Sex: Female
  Weight: 73.9 kg

DRUGS (2)
  1. IBRANCE [Suspect]
     Active Substance: PALBOCICLIB
     Indication: Breast cancer female
     Dosage: 100 MG
     Route: 048
  2. IBRANCE [Suspect]
     Active Substance: PALBOCICLIB
     Indication: Metastases to bone
     Dosage: 75 MG, CYCLIC (TAKE 1 CAPSULE DAILY BY MOUTH 21 DAYS ON, 7 DAYS OFF. REPEAT EVERY 4 WEEKS)
     Route: 048

REACTIONS (1)
  - Upper respiratory tract infection [Unknown]
